FAERS Safety Report 4315001-1 (Version None)
Quarter: 2004Q1

REPORT INFORMATION
  Report Type: 
  Country: None (occurrence: None)
  Receive Date: 20040309
  Receipt Date: 20040226
  Transmission Date: 20041129
  Serious: Yes (Other)
  Sender: FDA-Public Use
  Company Number: NSADSS2002019172

PATIENT
  Age: 70 Year
  Sex: Female

DRUGS (13)
  1. REMICADE [Suspect]
     Indication: RHEUMATOID ARTHRITIS
     Dosage: SEE IMAGE
     Route: 041
     Dates: start: 20020603, end: 20020603
  2. REMICADE [Suspect]
     Indication: RHEUMATOID ARTHRITIS
     Dosage: SEE IMAGE
     Route: 041
     Dates: start: 20020702, end: 20020702
  3. PLAQUENIL [Concomitant]
  4. CELEBREX [Concomitant]
  5. FOSAMAX [Concomitant]
  6. VIT D (ERGOCALCIFEROL) [Concomitant]
  7. CALCIUM (CALCIUM) [Concomitant]
  8. MULTIVITAMIN [Concomitant]
  9. APAP (PARACETAMOL) [Concomitant]
  10. BENADRYL [Concomitant]
  11. EVISTA [Concomitant]
  12. SOLU-MEDROL (METHYLPREDNISONE SODIUM SUCCINATE) [Concomitant]
  13. RANITIDINE [Concomitant]

REACTIONS (4)
  - DYSPNOEA [None]
  - OXYGEN SATURATION DECREASED [None]
  - SKIN DISCOLOURATION [None]
  - WHEEZING [None]
